FAERS Safety Report 13689223 (Version 1)
Quarter: 2017Q2

REPORT INFORMATION
  Report Type: Report from Study
  Country: US (occurrence: US)
  Receive Date: 20170626
  Receipt Date: 20170626
  Transmission Date: 20170830
  Serious: Yes (Hospitalization)
  Sender: FDA-Public Use
  Company Number: US-AUROBINDO-AUR-APL-2017-36151

PATIENT

DRUGS (1)
  1. ACETAMINOPHEN TABLET [Suspect]
     Active Substance: ACETAMINOPHEN
     Indication: PRODUCT USED FOR UNKNOWN INDICATION
     Route: 065

REACTIONS (8)
  - Cardiac arrest [Unknown]
  - Malaise [Unknown]
  - Nausea [Unknown]
  - Brain oedema [Unknown]
  - Liver injury [Unknown]
  - Abdominal pain [Unknown]
  - Dyspnoea [Unknown]
  - Vomiting [Unknown]
